FAERS Safety Report 8586646-8 (Version None)
Quarter: 2012Q3

REPORT INFORMATION
  Report Type: 
  Country: None (occurrence: None)
  Receive Date: 20120810
  Receipt Date: 20120808
  Transmission Date: 20120928
  Serious: Yes (Hospitalization)
  Sender: FDA-Public Use
  Company Number: PL-BRISTOL-MYERS SQUIBB COMPANY-16843732

PATIENT
  Age: 57 Year
  Sex: Female

DRUGS (1)
  1. IPILIMUMAB [Suspect]
     Indication: METASTATIC MALIGNANT MELANOMA
     Dosage: INTRP ON 06AUG12
     Route: 042
     Dates: start: 20120626

REACTIONS (2)
  - DIZZINESS [None]
  - INTRACRANIAL PRESSURE INCREASED [None]
